FAERS Safety Report 13253992 (Version 7)
Quarter: 2020Q1

REPORT INFORMATION
  Report Type: Spontaneous
  Country: GB (occurrence: GB)
  Receive Date: 20170220
  Receipt Date: 20200325
  Transmission Date: 20200409
  Serious: Yes (Hospitalization)
  Sender: FDA-Public Use
  Company Number: GB-BIOGEN-2017BI00359712

PATIENT
  Age: 49 Year
  Sex: Female

DRUGS (12)
  1. AVONEX PEN [Suspect]
     Active Substance: INTERFERON BETA-1A
     Indication: MULTIPLE SCLEROSIS
     Route: 050
  2. LAXIDO [Concomitant]
     Active Substance: POLYETHYLENE GLYCOL 3350\POTASSIUM CHLORIDE\SODIUM BICARBONATE\SODIUM CHLORIDE
     Indication: CONSTIPATION
     Dosage: 1-3 SACHETS
     Route: 050
  3. ORAMORPH [Concomitant]
     Active Substance: MORPHINE SULFATE
     Indication: PRODUCT USED FOR UNKNOWN INDICATION
     Route: 050
  4. AVONEX PEN [Suspect]
     Active Substance: INTERFERON BETA-1A
     Dosage: 6 MEGA U/ 0.5 ML
     Route: 050
     Dates: start: 20170227
  5. ZOMORPH [Concomitant]
     Active Substance: MORPHINE SULFATE
     Indication: PRODUCT USED FOR UNKNOWN INDICATION
     Route: 050
  6. MIRABEGRON [Concomitant]
     Active Substance: MIRABEGRON
     Indication: PRODUCT USED FOR UNKNOWN INDICATION
     Route: 050
  7. PARACETAMOL [Concomitant]
     Active Substance: ACETAMINOPHEN
     Indication: PRODUCT USED FOR UNKNOWN INDICATION
     Route: 050
  8. CODEINE [Concomitant]
     Active Substance: CODEINE
     Indication: PRODUCT USED FOR UNKNOWN INDICATION
     Route: 050
  9. CETIRIZINE [Concomitant]
     Active Substance: CETIRIZINE HYDROCHLORIDE
     Indication: PRODUCT USED FOR UNKNOWN INDICATION
     Route: 050
  10. ZOMORPH [Concomitant]
     Active Substance: MORPHINE SULFATE
     Route: 050
  11. FLUOXETINE [Concomitant]
     Active Substance: FLUOXETINE HYDROCHLORIDE
     Indication: PRODUCT USED FOR UNKNOWN INDICATION
     Route: 050
  12. IBUPROFEN. [Concomitant]
     Active Substance: IBUPROFEN
     Indication: PRODUCT USED FOR UNKNOWN INDICATION
     Route: 050

REACTIONS (8)
  - Periprosthetic fracture [Not Recovered/Not Resolved]
  - Fall [Recovered/Resolved]
  - Gait disturbance [Unknown]
  - Mobility decreased [Not Recovered/Not Resolved]
  - Pain [Unknown]
  - Hip fracture [Unknown]
  - Lower limb fracture [Unknown]
  - Joint dislocation [Unknown]

NARRATIVE: CASE EVENT DATE: 201509
